FAERS Safety Report 6904152-0 (Version None)
Quarter: 2010Q3

REPORT INFORMATION
  Report Type: 
  Country: None (occurrence: None)
  Receive Date: 20100804
  Receipt Date: 20090318
  Transmission Date: 20110219
  Serious: No
  Sender: FDA-Public Use
  Company Number: US-PFIZER INC-2009185432

PATIENT
  Sex: Female
  Weight: 72.6 kg

DRUGS (2)
  1. LYRICA [Suspect]
     Indication: NEUROPATHY PERIPHERAL
     Dosage: 75MG IN THE MORNING AND 200MG IN THE EVENING
     Dates: start: 20080101
  2. EFFEXOR XR [Concomitant]
     Dosage: UNK

REACTIONS (2)
  - DIZZINESS [None]
  - PAIN [None]
